FAERS Safety Report 5526191-7 (Version None)
Quarter: 2007Q4

REPORT INFORMATION
  Report Type: 
  Country: None (occurrence: None)
  Receive Date: 20071120
  Receipt Date: 20071106
  Transmission Date: 20080405
  Serious: Yes (Death, Hospitalization)
  Sender: FDA-Public Use
  Company Number: 2007000170

PATIENT
  Age: 64 Year
  Sex: Male

DRUGS (10)
  1. ERLOTINIB (ERLOTINIB HCL) (TABLET) (ERLOTINIB HCL) [Suspect]
     Indication: NON-SMALL CELL LUNG CANCER
     Dosage: 150 MG (150 MG,QD), ORAL
     Route: 048
     Dates: start: 20050808, end: 20070116
  2. OXYCONTIN [Concomitant]
  3. PREDNISONE [Concomitant]
  4. ACETAMINOPHEN [Concomitant]
  5. COZAAR [Concomitant]
  6. METOPROLOL TARTRATE [Concomitant]
  7. ENOXAPARIN SODIUM [Concomitant]
  8. IMOVANE (ZOPICLONE) [Concomitant]
  9. OXYCODONE HCL [Concomitant]
  10. ZOFRAN [Concomitant]

REACTIONS (9)
  - DIARRHOEA [None]
  - GENERAL PHYSICAL HEALTH DETERIORATION [None]
  - LUNG NEOPLASM MALIGNANT [None]
  - MALIGNANT NEOPLASM PROGRESSION [None]
  - MALNUTRITION [None]
  - METASTASES TO BONE [None]
  - NAUSEA [None]
  - PAIN [None]
  - VOMITING [None]
